FAERS Safety Report 7252320-3 (Version None)
Quarter: 2011Q1

REPORT INFORMATION
  Report Type: 
  Country: None (occurrence: None)
  Receive Date: 20110129
  Receipt Date: 20100204
  Transmission Date: 20110831
  Serious: No
  Sender: FDA-Public Use
  Company Number: PR-ABBOTT-10P-131-0624357-00

PATIENT
  Sex: Female
  Weight: 76.272 kg

DRUGS (5)
  1. CLINORIL [Concomitant]
     Indication: RHEUMATOID ARTHRITIS
     Route: 048
  2. OMEGA OIL [Concomitant]
     Indication: PRODUCT USED FOR UNKNOWN INDICATION
     Route: 048
  3. HUMIRA [Suspect]
     Indication: RHEUMATOID ARTHRITIS
     Dates: end: 20100201
  4. VISOPROLOL HYDROCHLORTHIAZIDE [Concomitant]
     Indication: HYPERTENSION
     Dosage: 5MG/0.25MG DAILY
     Route: 048
  5. MULTI-VITAMIN [Concomitant]
     Indication: PRODUCT USED FOR UNKNOWN INDICATION
     Route: 048

REACTIONS (2)
  - VULVOVAGINAL DISCOMFORT [None]
  - VULVOVAGINAL PRURITUS [None]
